FAERS Safety Report 17703200 (Version 3)
Quarter: 2021Q3

REPORT INFORMATION
  Report Type: Report from Study
  Country: IT (occurrence: IT)
  Receive Date: 20200424
  Receipt Date: 20210901
  Transmission Date: 20211014
  Serious: Yes (Hospitalization)
  Sender: FDA-Public Use
  Company Number: IT-ROCHE-2583281

PATIENT
  Age: 51 Year
  Sex: Male
  Weight: 82 kg

DRUGS (8)
  1. OXALIPLATIN. [Suspect]
     Active Substance: OXALIPLATIN
     Indication: COLORECTAL CANCER METASTATIC
     Dosage: DATE OF MOST RECENT DOSE 170 MG PRIOR TO AE ONSET: 09/JAN/2020?3 CYCLES OF INDUCTION
     Route: 042
     Dates: start: 20191210
  2. BEVACIZUMAB. [Suspect]
     Active Substance: BEVACIZUMAB
     Indication: COLORECTAL CANCER METASTATIC
     Dosage: DATE OF MOST RECENT DOSE 400 MG: 09/JAN/2020?3 CYCLES INDUCTION
     Route: 042
     Dates: start: 20191210
  3. BEVACIZUMAB. [Suspect]
     Active Substance: BEVACIZUMAB
     Dosage: FIRST CYCLE POST PROGRESSION
     Route: 042
     Dates: start: 20210526
  4. 5?FLUOROURACIL [Suspect]
     Active Substance: FLUOROURACIL
     Indication: COLORECTAL CANCER METASTATIC
     Dosage: DATE OF MOST RECENT DOSE 4800 MG: 09/JAN/2020?3 CYCLES
     Route: 042
     Dates: start: 20191210
  5. 5?FLUOROURACIL [Suspect]
     Active Substance: FLUOROURACIL
     Dosage: FIRST CYCLES POST PROGRESSION
     Route: 042
     Dates: start: 20210526
  6. IRINOTECAN [Suspect]
     Active Substance: IRINOTECAN
     Indication: COLORECTAL CANCER METASTATIC
     Dosage: DATE OF MOST RECENT DOSE 247 MG PRIOR TO AE ONSET: 09/JAN/2020?3 CYCLES OF INDUCTION
     Route: 065
     Dates: start: 20191201
  7. OXALIPLATIN. [Suspect]
     Active Substance: OXALIPLATIN
     Dosage: FIRST CYCLE POST PROGRESSION
     Route: 042
     Dates: start: 20210526
  8. IRINOTECAN [Suspect]
     Active Substance: IRINOTECAN
     Route: 065
     Dates: start: 20210526

REACTIONS (2)
  - Subileus [Recovered/Resolved]
  - Mesenteric cyst [Recovered/Resolved]

NARRATIVE: CASE EVENT DATE: 20200204
